FAERS Safety Report 6698416-6 (Version None)
Quarter: 2010Q2

REPORT INFORMATION
  Report Type: 
  Country: None (occurrence: None)
  Receive Date: 20100427
  Receipt Date: 20100419
  Transmission Date: 20101027
  Serious: Yes (Hospitalization)
  Sender: FDA-Public Use
  Company Number: KR-ROCHE-698258

PATIENT
  Sex: Female
  Weight: 60 kg

DRUGS (5)
  1. METHOXY POLYETHYLENE GLYCOL-EPOETIN BETA [Suspect]
     Route: 058
     Dates: start: 20100119, end: 20100415
  2. TELMISARTAN [Concomitant]
     Dates: start: 20080401
  3. FERROUS SULFATE TAB [Concomitant]
     Dosage: DRUG: FERROUS SULFATE DRIED 256 MG
     Dates: start: 20060411
  4. EZETIMIBE [Concomitant]
     Dates: start: 20080108
  5. BIODIASTASE [Concomitant]
     Dosage: DRUG: BIODIASTASE 2000
     Dates: start: 20090707

REACTIONS (2)
  - DIZZINESS [None]
  - VENTRICULAR EXTRASYSTOLES [None]
